FAERS Safety Report 5891581-X (Version None)
Quarter: 2008Q3

REPORT INFORMATION
  Report Type: 
  Country: None (occurrence: None)
  Receive Date: 20080922
  Receipt Date: 20061106
  Transmission Date: 20090109
  Serious: Yes (Life-Threatening, Hospitalization)
  Sender: FDA-Public Use
  Company Number: IT-ROCHE-570948

PATIENT
  Sex: Male
  Weight: 72 kg

DRUGS (2)
  1. PEGASYS [Suspect]
     Route: 065
     Dates: start: 20060208, end: 20060502
  2. RIBAVIRIN [Suspect]
     Route: 065
     Dates: start: 20060208, end: 20060502

REACTIONS (1)
  - ACUTE ABDOMEN [None]
